FAERS Safety Report 8758640 (Version 3)
Quarter: 2012Q4

REPORT INFORMATION
  Report Type: 
  Country: JP (occurrence: JP)
  Receive Date: 20120829
  Receipt Date: 20121001
  Transmission Date: 20130627
  Serious: Yes (Other)
  Sender: FDA-Public Use
  Company Number: JP-UCBSA-063895

PATIENT
  Age: 65 Year
  Sex: Male

DRUGS (1)
  1. E KEPPRA [Suspect]
     Dosage: UNKNOWN
     Route: 048

REACTIONS (3)
  - Loss of consciousness [Recovered/Resolved]
  - Acne [Unknown]
  - Drug interaction [Unknown]
